FAERS Safety Report 6766806-9 (Version None)
Quarter: 2010Q2

REPORT INFORMATION
  Report Type: 
  Country: None (occurrence: None)
  Receive Date: 20100611
  Receipt Date: 20100601
  Transmission Date: 20101027
  Serious: Yes (Death)
  Sender: FDA-Public Use
  Company Number: US-ELI_LILLY_AND_COMPANY-US201005004134

PATIENT
  Age: 22 Year
  Sex: Male
  Weight: 88.435 kg

DRUGS (3)
  1. ZYPREXA [Suspect]
     Indication: MOOD SWINGS
     Dosage: 2.5 MG, UNK
     Dates: start: 20100426
  2. METHADONE [Concomitant]
  3. ALCOHOL [Concomitant]

REACTIONS (2)
  - ASPIRATION [None]
  - OFF LABEL USE [None]
